FAERS Safety Report 7916559-3 (Version None)
Quarter: 2011Q4

REPORT INFORMATION
  Report Type: 
  Country: None (occurrence: None)
  Receive Date: 20111114
  Receipt Date: 20111101
  Transmission Date: 20120403
  Serious: Yes (Other)
  Sender: FDA-Public Use
  Company Number: 1000025129

PATIENT
  Age: 64 Year
  Sex: Female

DRUGS (9)
  1. VIIBRYD [Suspect]
     Indication: DEPRESSION
     Dosage: 10 MG (10 MG,1 IN 1 D),ORAL ; 20 MG (20 MG,1 IN 1 D),ORAL
     Route: 048
     Dates: start: 20110929, end: 20111005
  2. VIIBRYD [Suspect]
     Indication: DEPRESSION
     Dosage: 10 MG (10 MG,1 IN 1 D),ORAL ; 20 MG (20 MG,1 IN 1 D),ORAL
     Route: 048
     Dates: start: 20110922, end: 20110928
  3. VICODIN [Concomitant]
  4. ZANAFLEX [Concomitant]
  5. AMBIEN [Concomitant]
  6. VIIBRYD [Suspect]
     Indication: DEPRESSION
     Dosage: 40 MG (40 MG,1 IN 1 D),ORAL
     Route: 048
     Dates: start: 20111006, end: 20111021
  7. LOVASTATIN [Concomitant]
  8. ATIVAN [Concomitant]
  9. TRICOR [Concomitant]

REACTIONS (10)
  - IRRITABILITY [None]
  - DEPRESSION [None]
  - CONDITION AGGRAVATED [None]
  - HEADACHE [None]
  - DIZZINESS [None]
  - AMNESIA [None]
  - AGGRESSION [None]
  - SUICIDAL IDEATION [None]
  - CRYING [None]
  - CONFUSIONAL STATE [None]
